FAERS Safety Report 4759484-1 (Version None)
Quarter: 2005Q3

REPORT INFORMATION
  Report Type: 
  Country: None (occurrence: None)
  Receive Date: 20050831
  Receipt Date: 20050817
  Transmission Date: 20060218
  Serious: Yes (Other)
  Sender: FDA-Public Use
  Company Number: 2005SP002418

PATIENT
  Age: 78 Year
  Sex: Female

DRUGS (7)
  1. LUNESTA [Suspect]
     Indication: INSOMNIA
     Dosage: 3 MG, ORAL
     Route: 048
     Dates: start: 20050809, end: 20050811
  2. TEMAZEPAM [Suspect]
     Dates: end: 20050809
  3. TEMAZEPAM [Suspect]
     Dates: start: 20050801
  4. ALLEGRA [Concomitant]
  5. FLONASE [Concomitant]
  6. PRILOSEC [Concomitant]
  7. AMBIEN [Concomitant]

REACTIONS (1)
  - CONVULSION [None]
